FAERS Safety Report 4971878-8 (Version None)
Quarter: 2006Q2

REPORT INFORMATION
  Report Type: 
  Country: None (occurrence: None)
  Receive Date: 20060413
  Receipt Date: 20051026
  Transmission Date: 20061013
  Serious: Yes (Hospitalization, Other)
  Sender: FDA-Public Use
  Company Number: US-MERCK-0510USA09426

PATIENT
  Age: 50 Year
  Sex: Male
  Weight: 68 kg

DRUGS (37)
  1. VIOXX [Suspect]
     Indication: ARTHRITIS
     Route: 048
     Dates: start: 20000815, end: 20040602
  2. VIOXX [Suspect]
     Route: 048
     Dates: start: 20000815, end: 20040602
  3. VIOXX [Suspect]
     Route: 048
     Dates: start: 20000815, end: 20040602
  4. VIOXX [Suspect]
     Route: 048
     Dates: start: 20000815, end: 20040602
  5. TOPROL-XL [Concomitant]
     Route: 065
  6. MONOPRIL-HCT [Concomitant]
     Route: 065
  7. NITROGLYCERIN [Concomitant]
     Route: 065
  8. PRAVACHOL [Concomitant]
     Route: 065
  9. BUSPIRONE HYDROCHLORIDE [Concomitant]
     Route: 065
  10. METOPROLOL [Concomitant]
     Route: 065
  11. ACIPHEX [Concomitant]
     Route: 065
  12. HYDROCHLOROTHIAZIDE [Concomitant]
     Route: 065
  13. LISINOPRIL [Concomitant]
     Route: 065
  14. TYLENOL W/ CODEINE NO. 3 [Concomitant]
     Route: 065
  15. FLEXERIL [Concomitant]
     Route: 065
  16. NAPROXEN [Concomitant]
     Route: 065
  17. ACETAMINOPHEN AND PROPOXYPHENE NAPSYLATE [Concomitant]
     Route: 065
  18. [THERAPY UNSPECIFIED] [Concomitant]
     Route: 065
  19. KETOROLAC TROMETHAMINE [Concomitant]
     Route: 065
  20. ULTRACET [Concomitant]
     Route: 065
  21. ATACAND [Concomitant]
     Route: 065
  22. TYLENOL (CAPLET) [Concomitant]
     Route: 065
  23. CELEBREX [Concomitant]
     Route: 065
  24. SULAR [Concomitant]
     Route: 065
  25. BEXTRA [Concomitant]
     Route: 065
  26. DECADRON [Concomitant]
     Route: 065
  27. LOTENSIN [Concomitant]
     Route: 065
  28. ROCEPHIN [Concomitant]
     Route: 065
  29. NEXIUM [Concomitant]
     Route: 065
  30. DEXTROMETHORPHAN [Concomitant]
     Route: 065
  31. AMOXIL [Concomitant]
     Route: 065
  32. DIOVAN [Concomitant]
     Route: 065
  33. LORCET-HD [Concomitant]
     Route: 065
  34. KEFLEX [Concomitant]
     Route: 065
  35. BENTYL [Concomitant]
     Route: 065
  36. MOBIC [Concomitant]
     Route: 065
  37. PEPCID [Concomitant]
     Route: 065

REACTIONS (14)
  - ACUTE CORONARY SYNDROME [None]
  - ASTHMA [None]
  - BLOOD PRESSURE INCREASED [None]
  - BRONCHITIS [None]
  - CORONARY ARTERY DISEASE [None]
  - DEPRESSION [None]
  - DYSPNOEA [None]
  - HYPERCHOLESTEROLAEMIA [None]
  - HYPERGLYCAEMIA [None]
  - LEUKOCYTOSIS [None]
  - MYOCARDIAL INFARCTION [None]
  - NEUTROPENIA [None]
  - ORAL SURGERY [None]
  - SLEEP APNOEA SYNDROME [None]
